FAERS Safety Report 26205811 (Version 1)
Quarter: 2025Q4

REPORT INFORMATION
  Report Type: Spontaneous
  Country: US (occurrence: US)
  Receive Date: 20251229
  Receipt Date: 20251229
  Transmission Date: 20260117
  Serious: No
  Sender: TOLMAR
  Company Number: US-Tolmar-TLM-2025-09451

PATIENT

DRUGS (3)
  1. ELIGARD [Suspect]
     Active Substance: LEUPROLIDE ACETATE
     Indication: Prostate cancer
     Dosage: BOX: LOT 15370CUS EXP 01/2027?SN: 5907358626565?GTIN (GLOBAL TRADE ITEM NUMBER): 00362935461500?SYRI
  2. DEVICE [Suspect]
     Active Substance: DEVICE
     Indication: Prostate cancer
     Dosage: BOX: LOT 15370CUS EXP 01/2027?SN: 5907358626565?GTIN (GLOBAL TRADE ITEM NUMBER): 00362935461500?SYRI
  3. ELIGARD [Suspect]
     Active Substance: LEUPROLIDE ACETATE
     Indication: Prostate cancer

REACTIONS (4)
  - Incorrect dose administered [Unknown]
  - Intercepted product preparation error [Unknown]
  - Device occlusion [Unknown]
  - Device leakage [Unknown]
